FAERS Safety Report 5606153-1 (Version None)
Quarter: 2008Q1

REPORT INFORMATION
  Report Type: 
  Country: None (occurrence: None)
  Receive Date: 20080129
  Receipt Date: 20061206
  Transmission Date: 20080703
  Serious: No
  Sender: FDA-Public Use
  Company Number: A0630854A

PATIENT
  Sex: Female

DRUGS (2)
  1. WELLBUTRIN [Suspect]
     Route: 048
  2. PAXIL [Suspect]
     Indication: DRUG USE FOR UNKNOWN INDICATION
     Route: 048

REACTIONS (5)
  - AGITATION [None]
  - DEPRESSED MOOD [None]
  - LOSS OF LIBIDO [None]
  - PANIC REACTION [None]
  - POOR QUALITY SLEEP [None]
